FAERS Safety Report 15097555 (Version 3)
Quarter: 2019Q2

REPORT INFORMATION
  Report Type: Spontaneous
  Country: US (occurrence: US)
  Receive Date: 20180702
  Receipt Date: 20190508
  Transmission Date: 20190711
  Serious: Yes (Other)
  Sender: FDA-Public Use
  Company Number: US-INCYTE CORPORATION-2018IN006178

PATIENT

DRUGS (2)
  1. JAKAFI [Suspect]
     Active Substance: RUXOLITINIB
     Indication: POLYCYTHAEMIA VERA
     Dosage: 10 MG, BID
     Route: 048
     Dates: start: 20180412
  2. JAKAFI [Suspect]
     Active Substance: RUXOLITINIB
     Dosage: 10 MG, BID
     Route: 048
     Dates: start: 20180413

REACTIONS (9)
  - Abdominal discomfort [Unknown]
  - Nausea [Unknown]
  - Abdominal pain [Unknown]
  - Melanocytic naevus [Unknown]
  - Abdominal distension [Unknown]
  - Hordeolum [Unknown]
  - Infection [Unknown]
  - Headache [Unknown]
  - Skin cancer [Unknown]

NARRATIVE: CASE EVENT DATE: 20180613
